FAERS Safety Report 24939567 (Version 1)
Quarter: 2025Q1

REPORT INFORMATION
  Report Type: Spontaneous
  Country: US (occurrence: US)
  Receive Date: 20250206
  Receipt Date: 20250206
  Transmission Date: 20250409
  Serious: No
  Sender: ABBVIE
  Company Number: US-ABBVIE-6121294

PATIENT
  Age: 73 Year
  Sex: Female

DRUGS (1)
  1. LINZESS [Suspect]
     Active Substance: LINACLOTIDE
     Indication: Intestinal obstruction
     Route: 048
     Dates: start: 202501

REACTIONS (8)
  - Pollakiuria [Unknown]
  - Illness [Unknown]
  - Bladder discomfort [Unknown]
  - Influenza like illness [Unknown]
  - Dehydration [Unknown]
  - Hypotension [Unknown]
  - Fall [Unknown]
  - General symptom [Unknown]

NARRATIVE: CASE EVENT DATE: 20250101
